FAERS Safety Report 5460158-2 (Version None)
Quarter: 2007Q3

REPORT INFORMATION
  Report Type: 
  Country: None (occurrence: None)
  Receive Date: 20070919
  Receipt Date: 20070523
  Transmission Date: 20080115
  Serious: Yes (Hospitalization)
  Sender: FDA-Public Use
  Company Number: US-ASTRAZENECA-2007UW12909

PATIENT
  Age: 63 Year
  Sex: Female
  Weight: 80.3 kg

DRUGS (5)
  1. SEROQUEL [Suspect]
     Indication: DEPRESSION
     Route: 048
     Dates: start: 20070401
  2. GLIPIZIDE [Concomitant]
  3. METFORMIN HCL [Concomitant]
  4. CELEXA [Concomitant]
  5. BLOOD PRESSURE MEDICINE [Concomitant]

REACTIONS (5)
  - DRY MOUTH [None]
  - DYSKINESIA [None]
  - MUSCLE TWITCHING [None]
  - SUICIDAL IDEATION [None]
  - WEIGHT INCREASED [None]
